FAERS Safety Report 10407461 (Version 5)
Quarter: 2014Q4

REPORT INFORMATION
  Report Type: Report from Study
  Country: DE (occurrence: DE)
  Receive Date: 20140825
  Receipt Date: 20141118
  Transmission Date: 20150528
  Serious: Yes (Hospitalization, Other)
  Sender: FDA-Public Use
  Company Number: PHHY2014DE044813

PATIENT
  Sex: Female
  Weight: 95 kg

DRUGS (3)
  1. AFINITOR [Suspect]
     Active Substance: EVEROLIMUS
     Indication: BREAST CANCER METASTATIC
     Dosage: 5 MG, QD
     Route: 048
     Dates: start: 20131215, end: 20140419
  2. EXEMESTAN STADA [Suspect]
     Active Substance: EXEMESTANE
     Indication: BREAST CANCER METASTATIC
     Dosage: 25 MG, QD
     Route: 048
     Dates: start: 20131209, end: 20140419
  3. BISPHOSPHONATES [Concomitant]
     Active Substance: UNSPECIFIED INGREDIENT
     Indication: PROPHYLAXIS
     Route: 065

REACTIONS (7)
  - Disease progression [Unknown]
  - Cough [Recovered/Resolved]
  - Abdominal distension [Recovered/Resolved]
  - General physical health deterioration [Recovering/Resolving]
  - Nutritional condition abnormal [Recovered/Resolved]
  - Blood glucose increased [Recovered/Resolved]
  - Weight decreased [Unknown]

NARRATIVE: CASE EVENT DATE: 20140228
